FAERS Safety Report 9601817 (Version 2)
Quarter: 2013Q4

REPORT INFORMATION
  Report Type: Spontaneous
  Country: CA (occurrence: None)
  Receive Date: 20131002
  Receipt Date: 20131016
  Transmission Date: 20140711
  Serious: Yes (Other)
  Sender: FDA-Public Use
  Company Number: ACO_38771_2013

PATIENT
  Age: 55 Year
  Sex: 0

DRUGS (1)
  1. FAMPYRA (DALFAMPRIDINE) TABLET, 10MG [Suspect]
     Indication: GAIT DISTURBANCE
     Route: 048
     Dates: start: 20130416, end: 20130517

REACTIONS (4)
  - Hepatic cancer metastatic [None]
  - Bone cancer metastatic [None]
  - Intestinal ulcer [None]
  - Ileostomy [None]
